FAERS Safety Report 6366568-3 (Version None)
Quarter: 2009Q3

REPORT INFORMATION
  Report Type: 
  Country: None (occurrence: None)
  Receive Date: 20090921
  Receipt Date: 20090911
  Transmission Date: 20100115
  Serious: Yes (Hospitalization)
  Sender: FDA-Public Use
  Company Number: SE-ASTRAZENECA-2009SE12899

PATIENT
  Age: 90 Year
  Sex: Male

DRUGS (3)
  1. PLENDIL [Suspect]
     Route: 048
     Dates: end: 20090801
  2. SALURES [Suspect]
     Indication: ESSENTIAL HYPERTENSION
     Route: 048
     Dates: end: 20090801
  3. TROMBYL [Concomitant]

REACTIONS (1)
  - ORTHOSTATIC HYPOTENSION [None]
